FAERS Safety Report 12832655 (Version 1)
Quarter: 2016Q4

REPORT INFORMATION
  Report Type: Report from Study
  Country: NL (occurrence: NL)
  Receive Date: 20161010
  Receipt Date: 20161010
  Transmission Date: 20170207
  Serious: Yes (Hospitalization)
  Sender: FDA-Public Use
  Company Number: NL-ROCHE-1839404

PATIENT
  Age: 52 Year
  Sex: Female

DRUGS (9)
  1. TRASTUZUMAB [Suspect]
     Active Substance: TRASTUZUMAB
     Dosage: 6MG/KG MAINTENANCE DOSE?MOST RECENT DOSE OF TRASTUZUMAB PRIOR TO THE EVENT 15/SEP/2015
     Route: 042
  2. FLUOROURACIL. [Suspect]
     Active Substance: FLUOROURACIL
     Indication: BREAST CANCER
     Dosage: MOST RECENT DOSE 04/AUG/2015
     Route: 042
     Dates: start: 20150623
  3. PACLITAXEL. [Suspect]
     Active Substance: PACLITAXEL
     Indication: BREAST CANCER
     Dosage: MOST RECENT DSOE ON 15/SEP/2015
     Route: 042
     Dates: start: 20150825
  4. PERTUZUMAB [Suspect]
     Active Substance: PERTUZUMAB
     Indication: BREAST CANCER
     Dosage: LOADING DOSE
     Route: 042
     Dates: start: 20150623
  5. EPIRUBICIN [Suspect]
     Active Substance: EPIRUBICIN
     Indication: BREAST CANCER
     Dosage: MOST RECENT DOSE 04/AUG/2015
     Route: 042
     Dates: start: 20150623
  6. CARBOPLATIN. [Suspect]
     Active Substance: CARBOPLATIN
     Indication: BREAST CANCER
     Dosage: MOST RECENT DOSE 15/SEP/2015
     Route: 042
     Dates: start: 20150825
  7. PERTUZUMAB [Suspect]
     Active Substance: PERTUZUMAB
     Dosage: MAINTENANCE DOSE?MOST RECENT DOSE ON 15/SEP/2015
     Route: 042
  8. TRASTUZUMAB [Suspect]
     Active Substance: TRASTUZUMAB
     Indication: BREAST CANCER
     Dosage: LOADING DOSE?DAY 1 (D8 AND D15)
     Route: 042
     Dates: start: 20150623
  9. CYCLOPHOSPHAMIDE. [Suspect]
     Active Substance: CYCLOPHOSPHAMIDE
     Indication: BREAST CANCER
     Dosage: MOST RECENT DOSE 04/AUG/2015
     Route: 042
     Dates: start: 20150623

REACTIONS (3)
  - Dehydration [Recovered/Resolved]
  - Hypokalaemia [Recovered/Resolved]
  - Hypomagnesaemia [Recovered/Resolved]

NARRATIVE: CASE EVENT DATE: 20160925
